FAERS Safety Report 4956384-9 (Version None)
Quarter: 2006Q1

REPORT INFORMATION
  Report Type: 
  Country: None (occurrence: None)
  Receive Date: 20060323
  Receipt Date: 20060310
  Transmission Date: 20060701
  Serious: Yes (Hospitalization)
  Sender: FDA-Public Use
  Company Number: 2006035432

PATIENT
  Age: 66 Year
  Sex: Male

DRUGS (4)
  1. SOLU-MEDROL [Suspect]
     Indication: HEART TRANSPLANT
     Dates: start: 20050911, end: 20050918
  2. MEDROL TABLET (METHYLPREDISOLONE) [Suspect]
     Indication: HEART TRANSPLANT
     Dates: start: 20050919
  3. NEORAL [Concomitant]
  4. MYCOPHENOLATE MOFETIL [Concomitant]

REACTIONS (2)
  - COMPLICATIONS OF TRANSPLANTED HEART [None]
  - DIABETES MELLITUS [None]
